FAERS Safety Report 7176469-9 (Version None)
Quarter: 2010Q4

REPORT INFORMATION
  Report Type: 
  Country: None (occurrence: None)
  Receive Date: 20101220
  Receipt Date: 20101213
  Transmission Date: 20110411
  Serious: Yes (Death, Hospitalization, Other)
  Sender: FDA-Public Use
  Company Number: US-CELGENEUS-163-20785-10121623

PATIENT
  Sex: Male

DRUGS (8)
  1. THALOMID [Suspect]
     Indication: MULTIPLE MYELOMA
     Route: 048
     Dates: start: 20101028
  2. DEXAMETHASONE [Concomitant]
     Route: 065
  3. MELPHALAN [Concomitant]
     Route: 065
  4. RENAVITE [Concomitant]
     Route: 065
  5. MORPHINE SULFATE [Concomitant]
     Route: 065
  6. OMEPRAZOLE [Concomitant]
     Route: 048
  7. PREDNISONE [Concomitant]
     Route: 048
  8. SODIUM CITRATE [Concomitant]
     Route: 048

REACTIONS (7)
  - CARDIAC ARREST [None]
  - DEATH [None]
  - DISEASE PROGRESSION [None]
  - HAEMATOCRIT DECREASED [None]
  - HAEMOGLOBIN DECREASED [None]
  - RENAL FAILURE [None]
  - SYNCOPE [None]
